FAERS Safety Report 6253272-5 (Version None)
Quarter: 2009Q3

REPORT INFORMATION
  Report Type: 
  Country: None (occurrence: None)
  Receive Date: 20090701
  Receipt Date: 20090616
  Transmission Date: 20100115
  Serious: Yes (Death, Life-Threatening)
  Sender: FDA-Public Use
  Company Number: FR-GENENTECH-285819

PATIENT
  Sex: Female

DRUGS (19)
  1. RITUXIMAB [Suspect]
     Indication: BURKITT'S LYMPHOMA
     Dosage: 670 MG, QD
     Route: 042
     Dates: start: 20090609, end: 20090609
  2. VINCRISTINE [Suspect]
     Indication: BURKITT'S LYMPHOMA
     Dosage: 2 MG, QD
     Route: 042
     Dates: start: 20090610, end: 20090610
  3. METHOTREXATE [Suspect]
     Indication: BURKITT'S LYMPHOMA
     Dosage: 2700 MG, QD
     Route: 042
     Dates: start: 20090610
  4. METHOTREXATE [Suspect]
     Dosage: 15 MG, QD
     Dates: start: 20090611, end: 20090615
  5. PREDNISOLONE [Suspect]
     Indication: BURKITT'S LYMPHOMA
     Dosage: 107 MG, QD
     Route: 048
     Dates: start: 20090610, end: 20090614
  6. CYCLOPHOSPHAMIDE [Suspect]
     Indication: BURKITT'S LYMPHOMA
     Dosage: 440 MG, QD
     Route: 042
     Dates: start: 20090611, end: 20090613
  7. DOXORUBICIN HCL [Suspect]
     Indication: BURKITT'S LYMPHOMA
     Dosage: 108 MG, QD
     Route: 042
     Dates: start: 20090611, end: 20090611
  8. FUROSEMIDE INTENSOL [Concomitant]
     Indication: DRUG USE FOR UNKNOWN INDICATION
  9. ACYCLOVIR [Concomitant]
     Indication: DRUG USE FOR UNKNOWN INDICATION
  10. CANCIDAS [Concomitant]
     Indication: DRUG USE FOR UNKNOWN INDICATION
  11. OFLOXACIN [Concomitant]
     Indication: DRUG USE FOR UNKNOWN INDICATION
  12. TARGOCID [Concomitant]
     Indication: DRUG USE FOR UNKNOWN INDICATION
  13. LOVENOX [Concomitant]
     Indication: DRUG USE FOR UNKNOWN INDICATION
  14. CONTRAMAL [Concomitant]
     Indication: DRUG USE FOR UNKNOWN INDICATION
  15. FERROUS GLUCONATE [Concomitant]
     Indication: DRUG USE FOR UNKNOWN INDICATION
  16. NEXIUM [Concomitant]
     Indication: DRUG USE FOR UNKNOWN INDICATION
  17. PLITICAN [Concomitant]
     Indication: DRUG USE FOR UNKNOWN INDICATION
  18. BICARBONATE DE SODIUM [Concomitant]
     Indication: DRUG USE FOR UNKNOWN INDICATION
  19. POTASSIUM CHLORIDE [Concomitant]
     Indication: DRUG USE FOR UNKNOWN INDICATION

REACTIONS (4)
  - ACUTE RESPIRATORY DISTRESS SYNDROME [None]
  - FEBRILE BONE MARROW APLASIA [None]
  - LUNG DISORDER [None]
  - SEPSIS [None]
